FAERS Safety Report 9349051 (Version 1)
Quarter: 2013Q2

REPORT INFORMATION
  Report Type: Report from Study
  Country: US (occurrence: US)
  Receive Date: 20130614
  Receipt Date: 20130614
  Transmission Date: 20140414
  Serious: Yes (Hospitalization)
  Sender: FDA-Public Use
  Company Number: US-ABBOTT-13P-163-1101024-00

PATIENT
  Age: 54 Year
  Sex: Female
  Weight: 88.98 kg

DRUGS (1)
  1. HUMIRA [Suspect]
     Indication: COLITIS ULCERATIVE
     Dates: start: 201205, end: 201207

REACTIONS (5)
  - Large intestine perforation [Recovered/Resolved]
  - Fall [Recovered/Resolved]
  - Gastrointestinal infection [Recovered/Resolved]
  - Kidney infection [Recovered/Resolved]
  - Psoriasis [Not Recovered/Not Resolved]
